FAERS Safety Report 21048590 (Version 1)
Quarter: 2022Q3

REPORT INFORMATION
  Report Type: Spontaneous
  Country: US (occurrence: None)
  Receive Date: 20220705
  Receipt Date: 20220705
  Transmission Date: 20221027
  Serious: No
  Sender: FDA-Public Use
  Company Number: None

PATIENT
  Age: 50 Year
  Sex: Female

DRUGS (1)
  1. ALEVE [Suspect]
     Active Substance: NAPROXEN SODIUM
     Indication: Pain in extremity
     Dosage: OTHER QUANTITY : 320 CAPSULE(S);?
     Route: 048
     Dates: start: 20220705

REACTIONS (3)
  - Physical product label issue [None]
  - Circumstance or information capable of leading to medication error [None]
  - Product complaint [None]

NARRATIVE: CASE EVENT DATE: 20220705
